FAERS Safety Report 6565298-2 (Version None)
Quarter: 2010Q1

REPORT INFORMATION
  Report Type: 
  Country: None (occurrence: None)
  Receive Date: 20100201
  Receipt Date: 20100122
  Transmission Date: 20100710
  Serious: Yes (Hospitalization)
  Sender: FDA-Public Use
  Company Number: US-ROCHE-682103

PATIENT
  Sex: Male
  Weight: 83.5 kg

DRUGS (2)
  1. AVASTIN [Suspect]
     Dosage: LAST DOSE PRIOR TO SAE: 15 OCTOBER 2009
     Route: 042
  2. FIORINAL W/CODEINE [Concomitant]

REACTIONS (1)
  - CONVULSION [None]
